FAERS Safety Report 5355084-3 (Version None)
Quarter: 2007Q2

REPORT INFORMATION
  Report Type: 
  Country: None (occurrence: None)
  Receive Date: 20070524
  Receipt Date: 20060829
  Transmission Date: 20071010
  Serious: Yes (Hospitalization)
  Sender: FDA-Public Use
  Company Number: 461497

PATIENT
  Sex: Female

DRUGS (1)
  1. VALCYTE [Suspect]
     Indication: CYTOMEGALOVIRUS COLITIS
     Dosage: ORAL
     Route: 048

REACTIONS (2)
  - CYTOMEGALOVIRUS COLITIS [None]
  - DISEASE PROGRESSION [None]
